FAERS Safety Report 20097571 (Version 2)
Quarter: 2021Q4

REPORT INFORMATION
  Report Type: Spontaneous
  Country: US (occurrence: US)
  Receive Date: 20211122
  Receipt Date: 20211201
  Transmission Date: 20220303
  Serious: No
  Sender: FDA-Public Use
  Company Number: US-NOVARTISTESTPH-NVSC2021US266590

PATIENT
  Sex: Male

DRUGS (3)
  1. PATADAY [Suspect]
     Active Substance: OLOPATADINE HYDROCHLORIDE
     Indication: Product used for unknown indication
     Dosage: UNK
     Route: 047
  2. PATADAY [Suspect]
     Active Substance: OLOPATADINE HYDROCHLORIDE
     Dosage: UNK
     Route: 047
  3. PATADAY [Suspect]
     Active Substance: OLOPATADINE HYDROCHLORIDE
     Dosage: 2.5 ML, QID
     Route: 047

REACTIONS (3)
  - Nasal crusting [Recovered/Resolved]
  - Rhinorrhoea [Unknown]
  - Oropharyngeal pain [Unknown]
